FAERS Safety Report 24527098 (Version 1)
Quarter: 2024Q4

REPORT INFORMATION
  Report Type: Report from Study
  Country: US (occurrence: US)
  Receive Date: 20241021
  Receipt Date: 20241021
  Transmission Date: 20250115
  Serious: No
  Sender: ROCHE
  Company Number: US-ROCHE-3196549

PATIENT
  Age: 44 Year
  Sex: Male

DRUGS (3)
  1. COTELLIC [Suspect]
     Active Substance: COBIMETINIB
     Indication: Histiocytosis
     Dosage: TAKE 2 TABLET(S) BY MOUTH EVERY DAY ON DAYS 1-21 OF A 28 DAY CYCLE
     Route: 048
  2. COTELLIC [Suspect]
     Active Substance: COBIMETINIB
     Indication: Chronic kidney disease
  3. COTELLIC [Suspect]
     Active Substance: COBIMETINIB
     Indication: Pulmonary embolism

REACTIONS (2)
  - Off label use [Unknown]
  - No adverse event [Unknown]
